FAERS Safety Report 4649384-X (Version None)
Quarter: 2005Q2

REPORT INFORMATION
  Report Type: 
  Country: None (occurrence: None)
  Receive Date: 20050427
  Receipt Date: 20050318
  Transmission Date: 20051028
  Serious: Yes (Death)
  Sender: FDA-Public Use
  Company Number: A04200500283

PATIENT
  Age: 60 Year
  Sex: 0

DRUGS (2)
  1. ELOXATIN [Suspect]
     Indication: COLON CANCER
     Dosage: INTRAVENOUS DRIP
     Route: 041
  2. XELODA [Suspect]
     Indication: COLON CANCER
     Dosage: ORAL
     Route: 048

REACTIONS (3)
  - CEREBRAL HAEMORRHAGE [None]
  - COLITIS [None]
  - PANCYTOPENIA [None]
